FAERS Safety Report 11904601 (Version 1)
Quarter: 2016Q1

REPORT INFORMATION
  Report Type: Spontaneous
  Country: US (occurrence: US)
  Receive Date: 20160108
  Receipt Date: 20160108
  Transmission Date: 20160526
  Serious: Yes (Other)
  Sender: FDA-Public Use
  Company Number: US-ROCHE-1605396

PATIENT
  Age: 51 Year
  Sex: Female

DRUGS (4)
  1. HEPARIN [Suspect]
     Active Substance: HEPARIN SODIUM
     Indication: DEEP VEIN THROMBOSIS
  2. ALTEPLASE [Suspect]
     Active Substance: ALTEPLASE
     Indication: DEEP VEIN THROMBOSIS
  3. HEPARIN [Suspect]
     Active Substance: HEPARIN SODIUM
     Indication: PULMONARY EMBOLISM
     Route: 042
  4. ALTEPLASE [Suspect]
     Active Substance: ALTEPLASE
     Indication: PULMONARY EMBOLISM
     Dosage: 0.5 - 1 MG/H
     Route: 042

REACTIONS (1)
  - Hepatic haematoma [Unknown]
